FAERS Safety Report 9648162 (Version 1)
Quarter: 2013Q4

REPORT INFORMATION
  Report Type: Spontaneous
  Country: US (occurrence: None)
  Receive Date: 20131024
  Receipt Date: 20131024
  Transmission Date: 20140711
  Serious: No
  Sender: FDA-Public Use
  Company Number: None

PATIENT
  Sex: Female

DRUGS (10)
  1. RESTASIS [Suspect]
     Indication: DRY EYE
     Dosage: SINGLE VIALS EYE DROPS 2 TIMES/DAY EYE DROPS
  2. THYROID [Concomitant]
  3. AMBIEN [Concomitant]
  4. OMEPRAZOLE [Concomitant]
  5. TRAZODONE [Concomitant]
  6. BABY ASPIRIN [Concomitant]
  7. RADIDINE [Concomitant]
  8. MAGNESIUM [Concomitant]
  9. VITAMIN D [Concomitant]
  10. FOLIC ACID [Concomitant]

REACTIONS (2)
  - Vision blurred [None]
  - Eye irritation [None]
